FAERS Safety Report 4785838-3 (Version None)
Quarter: 2005Q3

REPORT INFORMATION
  Report Type: 
  Country: None (occurrence: None)
  Receive Date: 20050930
  Receipt Date: 20050916
  Transmission Date: 20060218
  Serious: No
  Sender: FDA-Public Use
  Company Number: 32498

PATIENT
  Age: 73 Year
  Sex: Male

DRUGS (5)
  1. BETAXOLOL HCL [Suspect]
     Indication: GLAUCOMA
     Dosage: 1 GTT BID OPHT
     Route: 047
     Dates: start: 20050301, end: 20050801
  2. GASTROCOTE [Concomitant]
  3. FINASTERIDE [Concomitant]
  4. TRAVOPROST [Concomitant]
  5. OMEPRAZOLE [Concomitant]

REACTIONS (2)
  - PEYRONIE'S DISEASE [None]
  - SEXUAL DYSFUNCTION [None]
